FAERS Safety Report 15137978 (Version 1)
Quarter: 2018Q3

REPORT INFORMATION
  Report Type: Spontaneous
  Country: US (occurrence: US)
  Receive Date: 20180712
  Receipt Date: 20180712
  Transmission Date: 20181010
  Serious: Yes (Other)
  Sender: FDA-Public Use
  Company Number: US-BEH-2018092661

PATIENT
  Age: 60 Year
  Sex: Female

DRUGS (2)
  1. HUMATE?P [Suspect]
     Active Substance: HUMAN COAGULATION FACTOR VIII/VON WILLEBRAND FACTOR COMPLEX
     Indication: PROPHYLAXIS
     Dosage: 4000 IU, TOT
     Route: 042
     Dates: start: 201804, end: 201804
  2. HUMATE?P [Suspect]
     Active Substance: HUMAN COAGULATION FACTOR VIII/VON WILLEBRAND FACTOR COMPLEX
     Indication: PROPHYLAXIS
     Dosage: 4000 IU, QD
     Route: 042

REACTIONS (2)
  - Head injury [Unknown]
  - Fall [Unknown]

NARRATIVE: CASE EVENT DATE: 201804
